FAERS Safety Report 10417323 (Version 1)
Quarter: 2014Q3

REPORT INFORMATION
  Report Type: Other
  Country: FR (occurrence: FR)
  Receive Date: 20140828
  Receipt Date: 20140828
  Transmission Date: 20150326
  Serious: Yes (Other)
  Sender: FDA-Public Use
  Company Number: FR-MYLAN-2014M1002910

PATIENT

DRUGS (2)
  1. VERAPAMIL [Suspect]
     Active Substance: VERAPAMIL HYDROCHLORIDE
     Dosage: 240 MG, 1 IN 2 HOURS
     Route: 048
     Dates: start: 20100508, end: 20100508
  2. KENZEN [Suspect]
     Active Substance: CANDESARTAN
     Dosage: 1 DF, 1 IN 2 HOURS
     Route: 048
     Dates: start: 20100508, end: 20100508

REACTIONS (3)
  - Incorrect dose administered [Recovered/Resolved]
  - Hypotension [Recovered/Resolved]
  - Medication error [Recovered/Resolved]

NARRATIVE: CASE EVENT DATE: 20100508
